FAERS Safety Report 21210086 (Version 1)
Quarter: 2022Q3

REPORT INFORMATION
  Report Type: Spontaneous
  Country: JP (occurrence: JP)
  Receive Date: 20220814
  Receipt Date: 20220814
  Transmission Date: 20221027
  Serious: Yes (Congenital Anomaly)
  Sender: FDA-Public Use
  Company Number: JP-ABBVIE-22K-087-4499731-00

PATIENT
  Sex: Female
  Weight: 0.8 kg

DRUGS (1)
  1. SKYRIZI [Suspect]
     Active Substance: RISANKIZUMAB-RZAA
     Indication: Maternal exposure timing unspecified
     Route: 064

REACTIONS (5)
  - Patent ductus arteriosus [Unknown]
  - Premature baby [Unknown]
  - Low birth weight baby [Unknown]
  - Anaemia neonatal [Unknown]
  - Foetal exposure during pregnancy [Unknown]

NARRATIVE: CASE EVENT DATE: 20220131
